FAERS Safety Report 6781146-X (Version None)
Quarter: 2010Q2

REPORT INFORMATION
  Report Type: 
  Country: None (occurrence: None)
  Receive Date: 20100617
  Receipt Date: 20100617
  Transmission Date: 20101027
  Serious: Yes (Hospitalization, Disabling)
  Sender: FDA-Public Use
  Company Number: None

PATIENT
  Sex: Female
  Weight: 49.8957 kg

DRUGS (1)
  1. CLOZAPINE 3 25MG [Suspect]
     Indication: SCHIZOAFFECTIVE DISORDER
     Dosage: 25 MG -100MG 1 25MG DAILY TO 7 100MG
     Dates: start: 20090219, end: 20091021

REACTIONS (1)
  - DYSGRAPHIA [None]
